FAERS Safety Report 5742015-7 (Version None)
Quarter: 2008Q2

REPORT INFORMATION
  Report Type: 
  Country: None (occurrence: None)
  Receive Date: 20080519
  Receipt Date: 20080506
  Transmission Date: 20081010
  Serious: Yes (Hospitalization)
  Sender: FDA-Public Use
  Company Number: DE-MERCK-0805USA01137

PATIENT
  Age: 69 Year
  Sex: Male

DRUGS (1)
  1. DECADRON SRC [Suspect]
     Indication: THROMBOCYTOPENIA
     Route: 048
     Dates: start: 20060101, end: 20060101

REACTIONS (1)
  - PNEUMONIA LEGIONELLA [None]
